FAERS Safety Report 11751921 (Version 1)
Quarter: 2015Q4

REPORT INFORMATION
  Report Type: Other
  Country: FR (occurrence: FR)
  Receive Date: 20151118
  Receipt Date: 20151118
  Transmission Date: 20160304
  Serious: Yes (Other)
  Sender: FDA-Public Use
  Company Number: FR-MYLANLABS-2015M1038842

PATIENT

DRUGS (2)
  1. CISPLATINE MYLAN [Suspect]
     Active Substance: CISPLATIN
     Indication: METASTATIC SQUAMOUS CELL CARCINOMA
     Dosage: 1 DF, CYCLE
     Route: 042
     Dates: start: 20150827
  2. TOPOTECAN TEVA [Concomitant]
     Indication: METASTATIC SQUAMOUS CELL CARCINOMA
     Dosage: 1 DF, CYCLE
     Route: 042
     Dates: start: 20150827, end: 20150918

REACTIONS (4)
  - Paraesthesia [Recovered/Resolved]
  - Hypotension [Recovered/Resolved]
  - Oxygen saturation decreased [Recovered/Resolved]
  - Erythema [Recovered/Resolved]

NARRATIVE: CASE EVENT DATE: 20150827
